FAERS Safety Report 7394321-0 (Version None)
Quarter: 2011Q2

REPORT INFORMATION
  Report Type: 
  Country: None (occurrence: None)
  Receive Date: 20110405
  Receipt Date: 20110330
  Transmission Date: 20111010
  Serious: Yes (Death, Hospitalization)
  Sender: FDA-Public Use
  Company Number: US-AMGEN-USASP2011016181

PATIENT
  Age: 76 Year
  Sex: Male
  Weight: 80.726 kg

DRUGS (3)
  1. FOLTX [Concomitant]
  2. PREDNISONE [Concomitant]
  3. NPLATE [Suspect]
     Indication: IDIOPATHIC THROMBOCYTOPENIC PURPURA
     Dosage: 500 A?G, QWK
     Route: 058
     Dates: start: 20100810, end: 20100921

REACTIONS (22)
  - ORGAN FAILURE [None]
  - LUNG INFECTION [None]
  - COLON CANCER [None]
  - ANASTOMOTIC HAEMORRHAGE [None]
  - HYPOTENSION [None]
  - GASTROINTESTINAL HAEMORRHAGE [None]
  - MALNUTRITION [None]
  - RENAL FAILURE ACUTE [None]
  - HYPOPHOSPHATAEMIA [None]
  - HYPERCHOLESTEROLAEMIA [None]
  - RENAL TUBULAR NECROSIS [None]
  - ARRHYTHMIA [None]
  - SHOCK [None]
  - BACK PAIN [None]
  - SEPSIS [None]
  - GASTRITIS [None]
  - HYPOMAGNESAEMIA [None]
  - RESPIRATORY FAILURE [None]
  - DIABETES MELLITUS [None]
  - HYPOKALAEMIA [None]
  - ABDOMINAL INFECTION [None]
  - CONSTIPATION [None]
